FAERS Safety Report 12993978 (Version 1)
Quarter: 2016Q4

REPORT INFORMATION
  Report Type: Spontaneous
  Country: JP (occurrence: JP)
  Receive Date: 20161202
  Receipt Date: 20161202
  Transmission Date: 20170207
  Serious: Yes (Hospitalization)
  Sender: FDA-Public Use
  Company Number: JP-NOVOPROD-510644

PATIENT
  Age: 13 Year
  Sex: Male
  Weight: 44.6 kg

DRUGS (6)
  1. NOVORAPID [Suspect]
     Active Substance: INSULIN ASPART
     Indication: TYPE 1 DIABETES MELLITUS
     Dosage: 142 U, QD
     Route: 058
     Dates: start: 20160428
  2. TRESIBA CHU FLEXTOUCH [Suspect]
     Active Substance: INSULIN DEGLUDEC
     Indication: TYPE 1 DIABETES MELLITUS
     Dosage: 16 U, QD
     Route: 058
     Dates: start: 20160428
  3. TRESIBA CHU FLEXTOUCH [Suspect]
     Active Substance: INSULIN DEGLUDEC
     Dosage: DOSE REDUCED
     Route: 058
     Dates: start: 20160502
  4. TRESIBA CHU FLEXTOUCH [Suspect]
     Active Substance: INSULIN DEGLUDEC
     Dosage: 10 U, QD
     Route: 058
     Dates: start: 20160510
  5. NOVORAPID [Suspect]
     Active Substance: INSULIN ASPART
     Dosage: DOSE REDUCED
     Route: 058
     Dates: start: 20160502
  6. NOVORAPID [Suspect]
     Active Substance: INSULIN ASPART
     Dosage: 67 U, QD
     Route: 058
     Dates: start: 20160510

REACTIONS (1)
  - Generalised oedema [Recovered/Resolved]

NARRATIVE: CASE EVENT DATE: 20160501
